FAERS Safety Report 8099597-2 (Version None)
Quarter: 2012Q1

REPORT INFORMATION
  Report Type: 
  Country: None (occurrence: None)
  Receive Date: 20120131
  Receipt Date: 20120120
  Transmission Date: 20120608
  Serious: Yes (Other)
  Sender: FDA-Public Use
  Company Number: GB-JNJFOC-20120109793

PATIENT
  Sex: Female

DRUGS (4)
  1. REMICADE [Suspect]
     Indication: CROHN'S DISEASE
     Dosage: LAST 2 INFUSIONS
     Route: 042
  2. REMICADE [Suspect]
     Route: 042
     Dates: start: 20100101
  3. METHOTREXATE [Concomitant]
     Dosage: INITIATED ON 24-DEC (YEAR UNSPECIFIED)
     Route: 065
  4. METHOTREXATE [Concomitant]
     Dosage: DOSE ON 24-DEC (YEAR UNSPECIFIED).
     Route: 065

REACTIONS (1)
  - CEREBRAL INFARCTION [None]
